FAERS Safety Report 13370240 (Version 1)
Quarter: 2017Q1

REPORT INFORMATION
  Report Type: Spontaneous
  Country: US (occurrence: US)
  Receive Date: 20170324
  Receipt Date: 20170324
  Transmission Date: 20170429
  Serious: No
  Sender: FDA-Public Use
  Company Number: US-ROCHE-1280068

PATIENT
  Age: 24 Year
  Sex: Male
  Weight: 85.35 kg

DRUGS (5)
  1. XYZAL [Concomitant]
     Active Substance: LEVOCETIRIZINE DIHYDROCHLORIDE
     Indication: URTICARIA CHRONIC
     Route: 048
     Dates: start: 20130111
  2. ALLEGRA [Concomitant]
     Active Substance: FEXOFENADINE HYDROCHLORIDE
     Indication: URTICARIA CHRONIC
     Route: 048
     Dates: start: 20130111
  3. RANITIDINE. [Concomitant]
     Active Substance: RANITIDINE
     Route: 048
     Dates: start: 20130111
  4. XOLAIR [Suspect]
     Active Substance: OMALIZUMAB
     Indication: URTICARIA CHRONIC
     Route: 058
     Dates: start: 20130509
  5. SINGULAIR [Concomitant]
     Active Substance: MONTELUKAST SODIUM
     Indication: URTICARIA CHRONIC
     Route: 048
     Dates: start: 20130111

REACTIONS (1)
  - Breast mass [Unknown]

NARRATIVE: CASE EVENT DATE: 20130520
